FAERS Safety Report 5692370-1 (Version None)
Quarter: 2008Q2

REPORT INFORMATION
  Report Type: 
  Country: None (occurrence: None)
  Receive Date: 20080402
  Receipt Date: 20080327
  Transmission Date: 20081010
  Serious: No
  Sender: FDA-Public Use
  Company Number: US-BAXTER-2008BH002827

PATIENT
  Age: 60 Year
  Sex: Male

DRUGS (1)
  1. ARALAST [Suspect]
     Indication: ALPHA-1 ANTI-TRYPSIN DEFICIENCY
     Dosage: DOSE UNIT:UNKNOWN
     Route: 042
     Dates: start: 20040920

REACTIONS (2)
  - PAIN IN JAW [None]
  - RESORPTION BONE INCREASED [None]
